FAERS Safety Report 23765562 (Version 4)
Quarter: 2025Q1

REPORT INFORMATION
  Report Type: Report from Study
  Country: CO (occurrence: CO)
  Receive Date: 20240420
  Receipt Date: 20250225
  Transmission Date: 20250408
  Serious: Yes (Other)
  Sender: GLAXOSMITHKLINE
  Company Number: CO-GLAXOSMITHKLINE-CO2024AMR020379

PATIENT

DRUGS (3)
  1. MEPOLIZUMAB [Suspect]
     Active Substance: MEPOLIZUMAB
     Indication: Asthma
     Dosage: 100 MG, MO (INJECTION)
     Dates: start: 20240212, end: 20241030
  2. SYMBICORT [Concomitant]
     Active Substance: BUDESONIDE\FORMOTEROL FUMARATE DIHYDRATE
     Indication: Product used for unknown indication
     Dosage: UNK UNK, BID,INHALATION THERAPY
  3. SPIRIVA [Concomitant]
     Active Substance: TIOTROPIUM BROMIDE MONOHYDRATE
     Indication: Product used for unknown indication
     Dosage: UNK, BID

REACTIONS (8)
  - Choking [Recovered/Resolved]
  - Pneumonitis [Not Recovered/Not Resolved]
  - Drowning [Not Recovered/Not Resolved]
  - Dizziness [Recovered/Resolved]
  - Illness [Unknown]
  - Influenza [Not Recovered/Not Resolved]
  - Dizziness exertional [Recovered/Resolved]
  - Vascular insufficiency [Not Recovered/Not Resolved]

NARRATIVE: CASE EVENT DATE: 20240212
